FAERS Safety Report 15630488 (Version 2)
Quarter: 2018Q4

REPORT INFORMATION
  Report Type: Spontaneous
  Country: US (occurrence: US)
  Receive Date: 20181119
  Receipt Date: 20181122
  Transmission Date: 20190205
  Serious: No
  Sender: FDA-Public Use
  Company Number: US-LUPIN PHARMACEUTICALS INC.-2018-06325

PATIENT
  Age: 73 Year
  Sex: Female
  Weight: 84 kg

DRUGS (3)
  1. CELECOXIB CAPSULES 50 MG [Suspect]
     Active Substance: CELECOXIB
     Dosage: 1 DF, EVERY OTHER DAY
     Route: 048
     Dates: start: 20180821
  2. STOOL SOFTENER (DOCUSATE) [Concomitant]
     Active Substance: DOCUSATE
     Indication: CONSTIPATION
     Dosage: UNK
     Route: 065
  3. CELECOXIB CAPSULES 50 MG [Suspect]
     Active Substance: CELECOXIB
     Indication: ARTHRITIS
     Dosage: 50 MG, QD
     Route: 048

REACTIONS (4)
  - Fatigue [Unknown]
  - Abdominal discomfort [Not Recovered/Not Resolved]
  - Peripheral swelling [Recovering/Resolving]
  - Asthenia [Unknown]

NARRATIVE: CASE EVENT DATE: 20180728
